FAERS Safety Report 25394725 (Version 1)
Quarter: 2025Q2

REPORT INFORMATION
  Report Type: Spontaneous
  Country: US (occurrence: US)
  Receive Date: 20250604
  Receipt Date: 20250604
  Transmission Date: 20250716
  Serious: Yes (Life-Threatening, Hospitalization)
  Sender: MYLAN
  Company Number: US-MYLANLABS-2025M1046015

PATIENT
  Sex: Male

DRUGS (28)
  1. AMIODARONE [Suspect]
     Active Substance: AMIODARONE
     Indication: Atrial flutter
     Dosage: 200 MILLIGRAM, QD
  2. AMIODARONE [Suspect]
     Active Substance: AMIODARONE
     Dosage: 200 MILLIGRAM, BID
  3. AMIODARONE [Suspect]
     Active Substance: AMIODARONE
  4. AMIODARONE [Suspect]
     Active Substance: AMIODARONE
     Indication: Atrial flutter
  5. AMIODARONE HYDROCHLORIDE [Suspect]
     Active Substance: AMIODARONE HYDROCHLORIDE
     Indication: Atrial flutter
     Dosage: 1 MILLIGRAM, QMINUTE; CONTINUOUS INFUSION FOR THE FIRST 6H; INFUSION
  6. AMIODARONE HYDROCHLORIDE [Suspect]
     Active Substance: AMIODARONE HYDROCHLORIDE
     Dosage: 0.5 MILLIGRAM, QMINUTE; INFUSION
  7. PROPRANOLOL [Suspect]
     Active Substance: PROPRANOLOL HYDROCHLORIDE
     Indication: Hypertrophic cardiomyopathy
  8. VERAPAMIL [Suspect]
     Active Substance: VERAPAMIL HYDROCHLORIDE
     Indication: Hypertrophic cardiomyopathy
  9. ADENOSINE [Suspect]
     Active Substance: ADENOSINE
     Indication: Atrial flutter
  10. METOPROLOL TARTRATE [Suspect]
     Active Substance: METOPROLOL TARTRATE
     Indication: Atrial flutter
     Dosage: 50 MILLIGRAM, BID
  11. PREDNISONE [Suspect]
     Active Substance: PREDNISONE
     Indication: Hyperthyroidism
  12. METHIMAZOLE [Suspect]
     Active Substance: METHIMAZOLE
     Indication: Hyperthyroidism
  13. PROPYLTHIOURACIL [Suspect]
     Active Substance: PROPYLTHIOURACIL
     Indication: Hyperthyroidism
  14. ESMOLOL [Suspect]
     Active Substance: ESMOLOL HYDROCHLORIDE
     Indication: Atrial flutter
  15. DILTIAZEM [Suspect]
     Active Substance: DILTIAZEM
     Indication: Atrial flutter
  16. MILRINONE [Suspect]
     Active Substance: MILRINONE
     Indication: Atrial flutter
  17. EPINEPHRINE [Suspect]
     Active Substance: EPINEPHRINE
     Indication: Cardiogenic shock
  18. NOREPINEPHRINE [Suspect]
     Active Substance: NOREPINEPHRINE
     Indication: Cardiogenic shock
  19. OMAVELOXOLONE [Suspect]
     Active Substance: OMAVELOXOLONE
     Indication: Friedreich^s ataxia
  20. DOFETILIDE [Suspect]
     Active Substance: DOFETILIDE
     Indication: Atrial flutter
     Dosage: 500 MICROGRAM, BID
  21. DOFETILIDE [Suspect]
     Active Substance: DOFETILIDE
     Dosage: 250 MICROGRAM, BID
  22. DOFETILIDE [Suspect]
     Active Substance: DOFETILIDE
     Dosage: 250 MICROGRAM, Q8H
  23. DIGOXIN [Suspect]
     Active Substance: DIGOXIN
     Indication: Atrial flutter
  24. VASOPRESSIN [Suspect]
     Active Substance: VASOPRESSIN
     Indication: Cardiogenic shock
  25. CEFEPIME [Concomitant]
     Active Substance: CEFEPIME HYDROCHLORIDE
     Indication: Pneumonia aspiration
  26. VANCOMYCIN [Concomitant]
     Active Substance: VANCOMYCIN
     Indication: Pneumonia aspiration
  27. METRONIDAZOLE [Concomitant]
     Active Substance: METRONIDAZOLE
     Indication: Pneumonia aspiration
  28. LEVOFLOXACIN [Concomitant]
     Active Substance: LEVOFLOXACIN
     Indication: Klebsiella infection

REACTIONS (8)
  - Toxicity to various agents [Unknown]
  - Hyperthyroidism [Unknown]
  - Cardiogenic shock [Unknown]
  - Acute left ventricular failure [Unknown]
  - Acute kidney injury [Unknown]
  - Cardiac arrest [Unknown]
  - Drug ineffective [Unknown]
  - Off label use [Unknown]
